FAERS Safety Report 26186260 (Version 1)
Quarter: 2025Q4

REPORT INFORMATION
  Report Type: Spontaneous
  Country: US (occurrence: None)
  Receive Date: 20251222
  Receipt Date: 20251222
  Transmission Date: 20260118
  Serious: Yes (Death, Life-Threatening, Other)
  Sender: APOTEX
  Company Number: US-APOTEX-2025AP034552

PATIENT
  Age: 66 Year
  Sex: Female

DRUGS (1)
  1. APIXABAN [Suspect]
     Active Substance: APIXABAN
     Indication: Atrial fibrillation
     Dosage: UNK
     Route: 065

REACTIONS (4)
  - Mitral valve incompetence [Fatal]
  - Disease recurrence [Fatal]
  - Condition aggravated [Fatal]
  - Pulmonary alveolar haemorrhage [Fatal]
